FAERS Safety Report 8364944-0 (Version None)
Quarter: 2012Q2

REPORT INFORMATION
  Report Type: 
  Country: None (occurrence: None)
  Receive Date: 20120516
  Receipt Date: 20120510
  Transmission Date: 20120825
  Serious: Yes (Death, Hospitalization)
  Sender: FDA-Public Use
  Company Number: US-GLAXOSMITHKLINE-A0883499A

PATIENT
  Age: 70 Year
  Sex: Male
  Weight: 100 kg

DRUGS (4)
  1. LIPITOR [Concomitant]
  2. ATENOLOL [Concomitant]
  3. AVANDIA [Suspect]
     Indication: DIABETES MELLITUS
     Dosage: 4MG PER DAY
     Route: 048
     Dates: start: 20021101, end: 20070604
  4. CARTIA XT [Concomitant]

REACTIONS (3)
  - PULMONARY OEDEMA [None]
  - INTESTINAL ISCHAEMIA [None]
  - CARDIAC FAILURE CONGESTIVE [None]
